FAERS Safety Report 8835867 (Version 1)
Quarter: 2012Q4

REPORT INFORMATION
  Report Type: 
  Country: BR (occurrence: BR)
  Receive Date: 20121011
  Receipt Date: 20121011
  Transmission Date: 20130627
  Serious: Yes (Hospitalization)
  Sender: FDA-Public Use
  Company Number: BR-PFIZER INC-2012251537

PATIENT
  Age: 61 Year
  Sex: Male
  Weight: 84 kg

DRUGS (5)
  1. CITALOR [Suspect]
     Indication: BLOOD CHOLESTEROL
     Dosage: UNK
     Dates: start: 2006
  2. ALDAZIDA [Concomitant]
     Dosage: UNK
  3. ALVESCO [Concomitant]
     Dosage: UNK
  4. ANCORON [Concomitant]
     Indication: CARDIAC DISORDER
     Dosage: UNK
  5. ZYLORIC [Concomitant]
     Dosage: UNK

REACTIONS (2)
  - Cardiac disorder [Unknown]
  - Prostatic disorder [Unknown]
